FAERS Safety Report 19613372 (Version 1)
Quarter: 2021Q3

REPORT INFORMATION
  Report Type: Spontaneous
  Country: US (occurrence: US)
  Receive Date: 20210726
  Receipt Date: 20210726
  Transmission Date: 20211014
  Serious: Yes (Disabling)
  Sender: FDA-Public Use
  Company Number: None

PATIENT
  Age: 55 Year
  Sex: Male
  Weight: 136.2 kg

DRUGS (3)
  1. VANCOMYCIN [Suspect]
     Active Substance: VANCOMYCIN
     Indication: DIABETIC FOOT INFECTION
     Route: 042
     Dates: start: 20210404, end: 20210407
  2. IOPAMADOL [Concomitant]
     Dates: start: 20210403, end: 20210403
  3. LISINOPRIL. [Concomitant]
     Active Substance: LISINOPRIL
     Dates: start: 20210404, end: 20210407

REACTIONS (1)
  - Acute kidney injury [None]

NARRATIVE: CASE EVENT DATE: 20210407
